FAERS Safety Report 7075338-2 (Version None)
Quarter: 2010Q4

REPORT INFORMATION
  Report Type: 
  Country: None (occurrence: None)
  Receive Date: 20101030
  Receipt Date: 20100930
  Transmission Date: 20110411
  Serious: No
  Sender: FDA-Public Use
  Company Number: US-WYE-H17003310

PATIENT
  Sex: Female
  Weight: 81.72 kg

DRUGS (4)
  1. PRISTIQ [Suspect]
     Indication: DEPRESSION
     Route: 048
     Dates: start: 20100801
  2. ATIVAN [Concomitant]
  3. SEROQUEL XR [Suspect]
     Indication: CRYING
  4. CYMBALTA [Concomitant]
     Indication: DEPRESSION

REACTIONS (3)
  - CONDITION AGGRAVATED [None]
  - CRYING [None]
  - DRUG INEFFECTIVE [None]
